FAERS Safety Report 16777017 (Version 3)
Quarter: 2019Q4

REPORT INFORMATION
  Report Type: Spontaneous
  Country: SE (occurrence: SE)
  Receive Date: 20190905
  Receipt Date: 20191218
  Transmission Date: 20200122
  Serious: Yes (Other)
  Sender: FDA-Public Use
  Company Number: PHHY2019SE203382

PATIENT
  Age: 68 Year
  Sex: Male

DRUGS (2)
  1. LINEZOLID. [Suspect]
     Active Substance: LINEZOLID
     Indication: IMPLANT SITE INFECTION
     Dosage: 600 MG, BID (FOR 5 WEEKS)
     Route: 048
  2. LINEZOLID. [Suspect]
     Active Substance: LINEZOLID
     Indication: ARTHRITIS INFECTIVE

REACTIONS (4)
  - Anaemia [Unknown]
  - Product use in unapproved indication [Unknown]
  - Rash [Recovered/Resolved]
  - Off label use [Unknown]
